FAERS Safety Report 23795262 (Version 1)
Quarter: 2024Q2

REPORT INFORMATION
  Report Type: Spontaneous
  Country: US (occurrence: US)
  Receive Date: 20240429
  Receipt Date: 20240429
  Transmission Date: 20240716
  Serious: No
  Sender: FDA-Public Use
  Company Number: US-HALEON-2170346

PATIENT
  Age: 85 Year

DRUGS (1)
  1. TUMS ULTRA [Suspect]
     Active Substance: CALCIUM CARBONATE
     Indication: Off label use
     Dosage: EXPDATE:20280430
     Route: 048

REACTIONS (1)
  - Off label use [Unknown]
